FAERS Safety Report 9381215 (Version 1)
Quarter: 2013Q3

REPORT INFORMATION
  Report Type: Spontaneous
  Country: FR (occurrence: FR)
  Receive Date: 20130703
  Receipt Date: 20130703
  Transmission Date: 20140515
  Serious: Yes (Hospitalization)
  Sender: FDA-Public Use
  Company Number: FR-009507513-1306FRA011204

PATIENT
  Age: 65 Year
  Sex: Female

DRUGS (9)
  1. FOSAVANCE [Suspect]
     Indication: OSTEOPOROSIS PROPHYLAXIS
     Dosage: 1 DF, QW
     Route: 048
     Dates: start: 2003, end: 20071011
  2. CHONDROSULF [Concomitant]
  3. IXPRIM (BINEDALINE HYDROCHLORIDE) [Concomitant]
  4. GINKOR FORT [Concomitant]
  5. GAVISCON (ALUMINUM HYDROXIDE (+) SODIUM ALGINATE) [Concomitant]
  6. VASTAREL [Concomitant]
  7. BROMAZEPAM [Concomitant]
  8. PROGESTERONE [Concomitant]
  9. ESTREVA [Concomitant]

REACTIONS (1)
  - Pathological fracture [Not Recovered/Not Resolved]
